FAERS Safety Report 14762593 (Version 1)
Quarter: 2018Q2

REPORT INFORMATION
  Report Type: Report from Study
  Country: US (occurrence: US)
  Receive Date: 20180416
  Receipt Date: 20180416
  Transmission Date: 20180711
  Serious: Yes (Other)
  Sender: FDA-Public Use
  Company Number: US-TAKEDA-2018MPI003796

PATIENT

DRUGS (3)
  1. VELCADE [Suspect]
     Active Substance: BORTEZOMIB
     Indication: WALDENSTROM^S MACROGLOBULINAEMIA
     Dosage: 1.6 MG/M2, 1/WEEK
     Route: 042
  2. EVEROLIMUS. [Suspect]
     Active Substance: EVEROLIMUS
     Indication: WALDENSTROM^S MACROGLOBULINAEMIA
     Dosage: 10 MG, QD
     Route: 048
  3. RITUXIMAB. [Suspect]
     Active Substance: RITUXIMAB
     Indication: WALDENSTROM^S MACROGLOBULINAEMIA
     Dosage: 375 MG/M2, UNK
     Route: 042

REACTIONS (1)
  - Tinnitus [Unknown]
